FAERS Safety Report 4852886-4 (Version None)
Quarter: 2005Q4

REPORT INFORMATION
  Report Type: 
  Country: None (occurrence: None)
  Receive Date: 20051212
  Receipt Date: 20051123
  Transmission Date: 20060501
  Serious: Yes (Other)
  Sender: FDA-Public Use
  Company Number: US200511002544

PATIENT
  Age: 18 Year
  Sex: Female

DRUGS (1)
  1. XYPREXA (OLANZAPINE ) [Suspect]
     Dosage: 7.5 MG DAILY (1/D)
     Dates: start: 20040301

REACTIONS (7)
  - ASTHMA [None]
  - CHEST PAIN [None]
  - DEPRESSION [None]
  - DRUG DEPENDENCE [None]
  - DYSPNOEA [None]
  - FEELING ABNORMAL [None]
  - PNEUMONIA [None]
